FAERS Safety Report 25281873 (Version 4)
Quarter: 2025Q4

REPORT INFORMATION
  Report Type: Spontaneous
  Country: EU (occurrence: EU)
  Receive Date: 20250508
  Receipt Date: 20251209
  Transmission Date: 20260117
  Serious: Yes (Disabling, Other)
  Sender: CELLTRION
  Company Number: EU-ROCHE-10000122102

PATIENT

DRUGS (10)
  1. TRASTUZUMAB [Suspect]
     Active Substance: TRASTUZUMAB
     Indication: HER2 positive breast cancer
     Dosage: FOUR CYCLES (TOTAL DOSE TO PRIMARY EVENT: 4 CYCLICAL)
     Route: 058
  2. TRASTUZUMAB [Suspect]
     Active Substance: TRASTUZUMAB
     Indication: Hormone receptor negative HER2 positive breast cancer
     Dosage: FOUR CYCLES
  3. PERTUZUMAB [Suspect]
     Active Substance: PERTUZUMAB
     Indication: HER2 positive breast cancer
     Dosage: FOUR CYCLES (TOTAL DOSE TO PRIMARY EVENT: 4 CYCLICAL)
     Route: 058
  4. PERTUZUMAB [Suspect]
     Active Substance: PERTUZUMAB
     Indication: Hormone receptor negative HER2 positive breast cancer
     Dosage: FOUR CYCLES
  5. PERTUZUMAB [Suspect]
     Active Substance: PERTUZUMAB
     Indication: Hormone receptor negative HER2 positive breast cancer
  6. DOCETAXEL [Suspect]
     Active Substance: DOCETAXEL
     Indication: HER2 positive breast cancer
     Dosage: FOUR CYCLES (TOTAL DOSE TO PRIMARY EVENT: 4 CYCLICAL)
     Route: 065
  7. DOCETAXEL [Suspect]
     Active Substance: DOCETAXEL
     Indication: Hormone receptor negative HER2 positive breast cancer
     Dosage: FOUR CYCLES
  8. CARBOPLATIN [Suspect]
     Active Substance: CARBOPLATIN
     Indication: HER2 positive breast cancer
     Dosage: FOUR CYCLES (TOTAL DOSE TO PRIMARY EVENT: 4 CYCLICAL)
     Route: 065
  9. CARBOPLATIN [Suspect]
     Active Substance: CARBOPLATIN
     Indication: Hormone receptor negative HER2 positive breast cancer
  10. CARBOPLATIN [Suspect]
     Active Substance: CARBOPLATIN
     Indication: Hormone receptor negative HER2 positive breast cancer

REACTIONS (5)
  - Central vision loss [Recovered/Resolved]
  - Papilloedema [Recovering/Resolving]
  - Headache [Unknown]
  - Dizziness [Unknown]
  - Intentional product use issue [Unknown]
